FAERS Safety Report 6671414-4 (Version None)
Quarter: 2010Q2

REPORT INFORMATION
  Report Type: 
  Country: None (occurrence: None)
  Receive Date: 20100406
  Receipt Date: 20100406
  Transmission Date: 20101027
  Serious: Yes (Hospitalization)
  Sender: FDA-Public Use
  Company Number: None

PATIENT
  Age: 20 Year
  Sex: Female
  Weight: 69.8539 kg

DRUGS (1)
  1. OCELLA 3MG DROSPIRENONE/0.03MG ETHINYL E BARR LABORATORIES [Suspect]
     Indication: HORMONE THERAPY
     Dosage: 3MG DROSPIRENONE 1 TABLET DAILY PO/0.03MG ETHINYL ESTRADIOL 1 TABLET DAILY PO
     Route: 048
     Dates: start: 20100115, end: 20100212

REACTIONS (14)
  - ABDOMINAL DISTENSION [None]
  - ABDOMINAL PAIN [None]
  - AMNESIA [None]
  - BLINDNESS [None]
  - DIARRHOEA [None]
  - DIZZINESS [None]
  - HAEMATOCHEZIA [None]
  - HYPERTENSION [None]
  - MIGRAINE [None]
  - PALPITATIONS [None]
  - PYREXIA [None]
  - SYNCOPE [None]
  - VOMITING [None]
  - WEIGHT DECREASED [None]
